FAERS Safety Report 4272575-7 (Version None)
Quarter: 2004Q1

REPORT INFORMATION
  Report Type: 
  Country: None (occurrence: None)
  Receive Date: 20040114
  Receipt Date: 20040114
  Transmission Date: 20041129
  Serious: Yes (Hospitalization, Other)
  Sender: FDA-Public Use
  Company Number: None

PATIENT
  Sex: Female
  Weight: 57.6068 kg

DRUGS (2)
  1. PAXIL [Suspect]
     Indication: PREMENSTRUAL SYNDROME
     Dosage: 1 PILL 1 X DAILY ORAL
     Route: 048
     Dates: start: 20000609, end: 20010219
  2. PAXIL [Suspect]
     Indication: PREMENSTRUAL SYNDROME
     Dosage: 1 PILL 1 X DAILY ORAL
     Route: 048
     Dates: start: 20010913, end: 20030319

REACTIONS (13)
  - DRUG HYPERSENSITIVITY [None]
  - DRUG WITHDRAWAL SYNDROME [None]
  - FATIGUE [None]
  - FEELING ABNORMAL [None]
  - HEART RATE INCREASED [None]
  - HYPOAESTHESIA ORAL [None]
  - IRRITABILITY [None]
  - MEMORY IMPAIRMENT [None]
  - MYOCARDIAL INFARCTION [None]
  - PALPITATIONS [None]
  - PREMENSTRUAL SYNDROME [None]
  - TINNITUS [None]
  - WEIGHT INCREASED [None]
